FAERS Safety Report 11743888 (Version 2)
Quarter: 2015Q4

REPORT INFORMATION
  Report Type: Spontaneous
  Country: FR (occurrence: FR)
  Receive Date: 20151116
  Receipt Date: 20151118
  Transmission Date: 20160304
  Serious: Yes (Hospitalization)
  Sender: FDA-Public Use
  Company Number: FR-SA-2015SA178525

PATIENT
  Age: 93 Year
  Sex: Female

DRUGS (13)
  1. LASILIX [Suspect]
     Active Substance: FUROSEMIDE
     Dosage: 40 MG-20 MG-0
     Route: 048
     Dates: end: 20150504
  2. GLYCEROL\PARAFFIN [Concomitant]
     Active Substance: GLYCERIN\PARAFFIN
  3. ORAMORPH [Concomitant]
     Active Substance: MORPHINE SULFATE
  4. ARTISIAL [Concomitant]
     Active Substance: CALCIUM CHLORIDE\MAGNESIUM CHLORIDE\POTASSIUM CHLORIDE\POTASSIUM PHOSPHATE, DIBASIC\POTASSIUM PHOSPHATE, MONOBASIC\SODIUM CHLORIDE
  5. CITALOPRAM [Concomitant]
     Active Substance: CITALOPRAM HYDROBROMIDE
     Dosage: 1-0-0
  6. OXYGEN. [Concomitant]
     Active Substance: OXYGEN
     Dosage: DOSE: 2 L/MIN
  7. PYOSTACINE [Concomitant]
     Active Substance: PRISTINAMYCIN
     Indication: WOUND
     Dates: start: 20150428, end: 20150504
  8. PARACETAMOL [Concomitant]
     Active Substance: ACETAMINOPHEN
  9. INEXIUM [Concomitant]
     Active Substance: ESOMEPRAZOLE
     Indication: GASTRIC DISORDER
     Dates: start: 20150331
  10. BISOCE [Concomitant]
     Active Substance: BISOPROLOL
     Dosage: DOSE: 2.5MG -0- 1.25MG
  11. UVEDOSE [Concomitant]
     Active Substance: CHOLECALCIFEROL
     Dosage: FREQUENCY: EVERY 3 MONTHS
  12. COUMADIN [Concomitant]
     Active Substance: WARFARIN SODIUM
     Dosage: 0-0-1
  13. LEVOTHYROX [Concomitant]
     Active Substance: LEVOTHYROXINE
     Dosage: STRENGTH: 50 MCG

REACTIONS (1)
  - Acute kidney injury [Recovered/Resolved]

NARRATIVE: CASE EVENT DATE: 20150504
